FAERS Safety Report 14537820 (Version 2)
Quarter: 2018Q1

REPORT INFORMATION
  Report Type: Spontaneous
  Country: TW (occurrence: TW)
  Receive Date: 20180215
  Receipt Date: 20180226
  Transmission Date: 20180509
  Serious: Yes (Hospitalization)
  Sender: FDA-Public Use
  Company Number: TW-CONCORDIA PHARMACEUTICALS INC.-GSH201802-000599

PATIENT
  Age: 86 Year
  Sex: Female

DRUGS (9)
  1. PENTOXIFYLLINE. [Concomitant]
     Active Substance: PENTOXIFYLLINE
  2. FOLIC ACID. [Concomitant]
     Active Substance: FOLIC ACID
  3. PERINDOPRIL [Concomitant]
     Active Substance: PERINDOPRIL
  4. WARFARIN [Concomitant]
     Active Substance: WARFARIN
  5. DIGOXIN. [Suspect]
     Active Substance: DIGOXIN
  6. FENOTEROL [Concomitant]
     Active Substance: FENOTEROL
  7. INDAPAMIDE. [Concomitant]
     Active Substance: INDAPAMIDE
  8. NICORANDIL [Concomitant]
     Active Substance: NICORANDIL
  9. HYDROXYZINE [Concomitant]
     Active Substance: HYDROXYZINE HYDROCHLORIDE

REACTIONS (1)
  - Angiopathy [Recovering/Resolving]
